FAERS Safety Report 6105958-0 (Version None)
Quarter: 2009Q1

REPORT INFORMATION
  Report Type: 
  Country: None (occurrence: None)
  Receive Date: 20090306
  Receipt Date: 20080415
  Transmission Date: 20090719
  Serious: Yes (Other)
  Sender: FDA-Public Use
  Company Number: US-BRISTOL-MYERS SQUIBB COMPANY-14155790

PATIENT

DRUGS (1)
  1. TAXOL [Suspect]
     Indication: NEOPLASM MALIGNANT

REACTIONS (1)
  - ATRIAL FIBRILLATION [None]
